FAERS Safety Report 8988060 (Version 1)
Quarter: 2012Q4

REPORT INFORMATION
  Report Type: 
  Country: GB (occurrence: GB)
  Receive Date: 20121227
  Receipt Date: 20121227
  Transmission Date: 20130627
  Serious: Yes (Life-Threatening, Hospitalization)
  Sender: FDA-Public Use
  Company Number: GB-BANPHARM-20120453

PATIENT
  Age: 77 Year
  Sex: Female

DRUGS (8)
  1. IBUPROFEN UNKNOWN PRODUCT [Suspect]
     Indication: ARTHRALGIA
     Dosage: 600 mg, BID,
     Route: 048
     Dates: start: 20040929, end: 20041017
  2. CELECOXIB [Suspect]
     Indication: ARTHRALGIA
     Dosage: 100 mg, QD,
     Route: 048
     Dates: start: 20040910, end: 20040922
  3. DICLOFENAC [Suspect]
     Indication: ARTHRALGIA
     Dosage: 50 mg, TID
     Dates: start: 20040922, end: 20040929
  4. AMOXYCILLIN [Concomitant]
     Dosage: 250 mg, TID
     Route: 048
     Dates: start: 20040910, end: 20040919
  5. CO-CODAMOL [Concomitant]
     Route: 048
     Dates: start: 20040922, end: 20040929
  6. CO-DYDRAMOL [Concomitant]
     Route: 048
     Dates: start: 20040929, end: 20041017
  7. PARACETAMOL [Concomitant]
     Dosage: 1 g, TID
     Route: 048
     Dates: start: 20040920, end: 20040922
  8. TRIMETHOPRIM [Concomitant]
     Dosage: 200 mg BID
     Dates: start: 20040920, end: 20040922

REACTIONS (2)
  - Thrombocytopenia [Recovering/Resolving]
  - Contusion [Recovering/Resolving]
